FAERS Safety Report 11661575 (Version 2)
Quarter: 2015Q4

REPORT INFORMATION
  Report Type: Spontaneous
  Country: BR (occurrence: BR)
  Receive Date: 20151026
  Receipt Date: 20151104
  Transmission Date: 20160304
  Serious: Yes (Other)
  Sender: FDA-Public Use
  Company Number: BR-PFIZER INC-2015353388

PATIENT
  Age: 29 Year
  Sex: Male

DRUGS (3)
  1. VIAGRA [Suspect]
     Active Substance: SILDENAFIL CITRATE
     Dosage: 20 -50MG TABLETS AND 20 -100MG TABLETS TOTALING 3 GRAMS OF SILDENAFIL WITHIN ONE HOUR (3 GRAMS)
     Route: 048
  2. VIAGRA [Suspect]
     Active Substance: SILDENAFIL CITRATE
     Dosage: 20 TABLETS OF 50MG (1000 MG), 2X/DAY (PRECEDING EACH SEXUAL ENCOUNTER)
     Route: 048
  3. VIAGRA [Suspect]
     Active Substance: SILDENAFIL CITRATE
     Indication: SEXUAL DYSFUNCTION
     Dosage: 25 MG, AS NEEDED (AT EVERY SEXUAL ENCOUNTER)
     Route: 048
     Dates: start: 2010

REACTIONS (6)
  - Visual field tests abnormal [Recovered/Resolved]
  - Optic ischaemic neuropathy [Recovered/Resolved]
  - Vision blurred [Recovered/Resolved]
  - Intentional overdose [Recovered/Resolved]
  - Headache [Recovered/Resolved]
  - Flushing [Recovered/Resolved]
